FAERS Safety Report 21797036 (Version 7)
Quarter: 2023Q1

REPORT INFORMATION
  Report Type: Spontaneous
  Country: US (occurrence: US)
  Receive Date: 20221230
  Receipt Date: 20230206
  Transmission Date: 20230418
  Serious: Yes (Other)
  Sender: FDA-Public Use
  Company Number: US-JNJFOC-20221243259

PATIENT
  Age: 51 Year
  Sex: Female
  Weight: 75.818 kg

DRUGS (7)
  1. SPRAVATO [Suspect]
     Active Substance: ESKETAMINE
     Indication: Depression
     Dosage: ^56 MG, 6 TOTAL DOSES^
     Dates: start: 20221209, end: 20221227
  2. SPRAVATO [Suspect]
     Active Substance: ESKETAMINE
     Dates: start: 20230104, end: 20230104
  3. PRAZOSIN [Concomitant]
     Active Substance: PRAZOSIN
     Indication: Hypertension
     Route: 065
  4. PRAZOSIN [Concomitant]
     Active Substance: PRAZOSIN
     Indication: Tremor
  5. XANAX [Concomitant]
     Active Substance: ALPRAZOLAM
     Route: 065
  6. VIIBRYD [Concomitant]
     Active Substance: VILAZODONE HYDROCHLORIDE
     Route: 065
  7. PROPRANOLOL [Concomitant]
     Active Substance: PROPRANOLOL HYDROCHLORIDE
     Route: 065

REACTIONS (21)
  - Suicidal ideation [Unknown]
  - Mania [Not Recovered/Not Resolved]
  - Product taste abnormal [Not Recovered/Not Resolved]
  - Cough [Not Recovered/Not Resolved]
  - Feeling abnormal [Unknown]
  - Anger [Not Recovered/Not Resolved]
  - Drug ineffective [Unknown]
  - Sleep disorder [Not Recovered/Not Resolved]
  - Negative thoughts [Unknown]
  - Increased appetite [Not Recovered/Not Resolved]
  - Influenza [Unknown]
  - Head banging [Unknown]
  - Gastric disorder [Unknown]
  - Cystitis [Unknown]
  - Feeling drunk [Unknown]
  - Depression [Unknown]
  - Visual impairment [Unknown]
  - Urinary tract infection [Unknown]
  - Tremor [Unknown]
  - Hyperphagia [Unknown]
  - Vomiting [Unknown]

NARRATIVE: CASE EVENT DATE: 20221201
